FAERS Safety Report 6340731-X (Version None)
Quarter: 2009Q3

REPORT INFORMATION
  Report Type: 
  Country: None (occurrence: None)
  Receive Date: 20090904
  Receipt Date: 20090827
  Transmission Date: 20100115
  Serious: Yes (Death)
  Sender: FDA-Public Use
  Company Number: CO-JNJFOC-20090900159

PATIENT
  Age: 46 Year
  Sex: Male

DRUGS (1)
  1. DORIBAX [Suspect]
     Indication: SEPSIS
     Route: 041

REACTIONS (1)
  - SEPSIS [None]
